FAERS Safety Report 12415712 (Version 1)
Quarter: 2016Q2

REPORT INFORMATION
  Report Type: Spontaneous
  Country: BG (occurrence: BG)
  Receive Date: 20160530
  Receipt Date: 20160530
  Transmission Date: 20160815
  Serious: Yes (Life-Threatening, Hospitalization, Other)
  Sender: FDA-Public Use
  Company Number: BG-APOTEX-2016AP008726

PATIENT
  Age: 37 Year
  Sex: Female

DRUGS (4)
  1. OLANZAPINE  APOTEX [Suspect]
     Active Substance: OLANZAPINE
     Indication: SUICIDE ATTEMPT
     Dosage: INGESTED 0.3 G OF OLANZAPINE (30 TABLES OF 10MG)
     Route: 048
  2. OLANZAPINE  APOTEX [Suspect]
     Active Substance: OLANZAPINE
     Indication: POISONING DELIBERATE
  3. DAPSONE. [Suspect]
     Active Substance: DAPSONE
     Indication: POISONING DELIBERATE
  4. DAPSONE. [Suspect]
     Active Substance: DAPSONE
     Indication: SUICIDE ATTEMPT
     Dosage: INGESTED 4.5 G OF DAPSONE (45 TABLES OF 100MG)
     Route: 048

REACTIONS (7)
  - Intentional overdose [Recovered/Resolved]
  - Poisoning deliberate [Recovered/Resolved]
  - Toxicity to various agents [Recovered/Resolved]
  - Hepatitis toxic [Not Recovered/Not Resolved]
  - Coma [Recovered/Resolved]
  - Suicide attempt [Recovered/Resolved]
  - Methaemoglobinaemia [Recovered/Resolved]
